FAERS Safety Report 23409949 (Version 1)
Quarter: 2024Q1

REPORT INFORMATION
  Report Type: Spontaneous
  Country: CN (occurrence: CN)
  Receive Date: 20240117
  Receipt Date: 20240117
  Transmission Date: 20240410
  Serious: Yes (Hospitalization, Other)
  Sender: FDA-Public Use
  Company Number: CN-009507513-2401CHN005628

PATIENT
  Age: 79 Year
  Sex: Male
  Weight: 62 kg

DRUGS (3)
  1. CANCIDAS [Suspect]
     Active Substance: CASPOFUNGIN ACETATE
     Indication: Aspergillus infection
     Dosage: 70 MG, ONCE
     Route: 041
     Dates: start: 20231230, end: 20231230
  2. CANCIDAS [Suspect]
     Active Substance: CASPOFUNGIN ACETATE
     Dosage: 50 MG, QD
     Route: 041
     Dates: start: 20231231, end: 20240102
  3. SODIUM CHLORIDE [Concomitant]
     Active Substance: SODIUM CHLORIDE
     Indication: Medication dilution
     Dosage: 250 ML, QD
     Route: 041
     Dates: start: 20231230, end: 20240102

REACTIONS (2)
  - Liver injury [Recovering/Resolving]
  - Rash [Recovering/Resolving]

NARRATIVE: CASE EVENT DATE: 20240102
